FAERS Safety Report 21153519 (Version 1)
Quarter: 2022Q3

REPORT INFORMATION
  Report Type: Spontaneous
  Country: JP (occurrence: JP)
  Receive Date: 20220731
  Receipt Date: 20220731
  Transmission Date: 20221026
  Serious: Yes (Death)
  Sender: FDA-Public Use
  Company Number: JP-NOVARTISPH-NVSJ2022JP094428

PATIENT
  Age: 82 Year
  Sex: Male

DRUGS (3)
  1. INDACATEROL ACETATE\MOMETASONE FUROATE [Suspect]
     Active Substance: INDACATEROL ACETATE\MOMETASONE FUROATE
     Indication: Asthma
     Dosage: 1DF: INDACATEROL ACETATE 150UG, MOMETASONE FUROATE 320UG
     Route: 055
     Dates: start: 20220507, end: 20220519
  2. INDACATEROL ACETATE\MOMETASONE FUROATE [Suspect]
     Active Substance: INDACATEROL ACETATE\MOMETASONE FUROATE
     Dosage: 1DF: INDACATEROL ACETATE 150UG, MOMETASONE FUROATE 320UG
     Route: 055
     Dates: start: 20220525, end: 20220703
  3. GLYCOPYRROLATE\INDACATEROL\MOMETASONE FUROATE [Suspect]
     Active Substance: GLYCOPYRROLATE\INDACATEROL\MOMETASONE FUROATE
     Indication: Asthma
     Dosage: 1DF: INDACATEROL ACETATE 150UG, GLYCOPYRRONIUM BROMIDE 50UG, MOMETASONE FUROATE 160UG
     Route: 055
     Dates: start: 20220520, end: 20220524

REACTIONS (1)
  - Cardiac failure [Fatal]

NARRATIVE: CASE EVENT DATE: 20220703
